FAERS Safety Report 6369370-1 (Version None)
Quarter: 2009Q3

REPORT INFORMATION
  Report Type: 
  Country: None (occurrence: None)
  Receive Date: 20090917
  Receipt Date: 20090908
  Transmission Date: 20100115
  Serious: Yes (Hospitalization, Other)
  Sender: FDA-Public Use
  Company Number: 0909-SPO-VANT-0117

PATIENT
  Age: 69 Year
  Sex: Male
  Weight: 126.1 kg

DRUGS (5)
  1. VANTAS [Suspect]
     Indication: PROSTATIC SPECIFIC ANTIGEN ABNORMAL
     Dosage: 1 IN 1 Y, SUB Q. IMPLANT
     Route: 058
     Dates: start: 20081101
  2. PRIOLOSEC (OMEPRAZOLE) [Concomitant]
  3. NEXIUM [Concomitant]
  4. ULTRACET (ULTRACET) [Concomitant]
  5. OTHER UNSPECIFIED MEDICATIONS [Concomitant]

REACTIONS (5)
  - ANKLE FRACTURE [None]
  - BONE PAIN [None]
  - FALL [None]
  - LOWER LIMB FRACTURE [None]
  - OSTEOPOROSIS [None]
